FAERS Safety Report 11831690 (Version 1)
Quarter: 2015Q4

REPORT INFORMATION
  Report Type: Spontaneous
  Country: US (occurrence: US)
  Receive Date: 20151214
  Receipt Date: 20151214
  Transmission Date: 20160305
  Serious: Yes (Other)
  Sender: FDA-Public Use
  Company Number: US-ASTELLAS-2015US046522

PATIENT
  Sex: Male

DRUGS (1)
  1. VESICARE [Suspect]
     Active Substance: SOLIFENACIN SUCCINATE
     Indication: PRODUCT USED FOR UNKNOWN INDICATION
     Route: 048
     Dates: start: 201506, end: 201512

REACTIONS (5)
  - Dry mouth [Unknown]
  - Paralysis [Unknown]
  - Tooth loss [Unknown]
  - Myalgia [Unknown]
  - Adverse event [Unknown]

NARRATIVE: CASE EVENT DATE: 2015
